FAERS Safety Report 6265381-5 (Version None)
Quarter: 2009Q3

REPORT INFORMATION
  Report Type: 
  Country: None (occurrence: None)
  Receive Date: 20090709
  Receipt Date: 20090625
  Transmission Date: 20100115
  Serious: Yes (Hospitalization)
  Sender: FDA-Public Use
  Company Number: 2009AR0022

PATIENT
  Age: 6 Year
  Sex: Female

DRUGS (1)
  1. ORFADIN [Suspect]
     Indication: TYROSINAEMIA
     Dosage: 1 MG/KG ORAL
     Route: 048
     Dates: start: 20090109, end: 20090611

REACTIONS (7)
  - ACTIVATED PARTIAL THROMBOPLASTIN TIME PROLONGED [None]
  - HEPATIC CIRRHOSIS [None]
  - HEPATIC DYSPLASIA [None]
  - HEPATIC NEOPLASM [None]
  - LIVER TRANSPLANT [None]
  - PROTHROMBIN LEVEL INCREASED [None]
  - TREATMENT NONCOMPLIANCE [None]
